FAERS Safety Report 20513499 (Version 1)
Quarter: 2022Q1

REPORT INFORMATION
  Report Type: Spontaneous
  Country: US (occurrence: US)
  Receive Date: 20220224
  Receipt Date: 20220224
  Transmission Date: 20220423
  Serious: No
  Sender: FDA-Public Use
  Company Number: US-AMNEAL PHARMACEUTICALS-2021-AMRX-04271

PATIENT
  Sex: Male

DRUGS (8)
  1. RYTARY [Suspect]
     Active Substance: CARBIDOPA\LEVODOPA
     Indication: Parkinson^s disease
     Dosage: 61.25 MG/245 MG, 1 CAPSULES, 4X/DAY, (6AM, 11AM, 4PM, 9PM)
     Route: 048
     Dates: start: 202106, end: 2021
  2. RYTARY [Suspect]
     Active Substance: CARBIDOPA\LEVODOPA
     Dosage: HIGHER STRENGTH 1 CAPSULES 3 TIMES A DAY (AT 6AM, 10AM AND 7PM) AND LOWER STRENGTH 1 CAPSULE A DAY (
     Route: 065
     Dates: start: 2021, end: 2021
  3. RYTARY [Suspect]
     Active Substance: CARBIDOPA\LEVODOPA
     Dosage: 36.25 MG/145 MG, 1 CAPSULES 4 TIMES A DAY
     Route: 048
     Dates: start: 2021
  4. CARBIDOPA AND LEVODOPA [Concomitant]
     Active Substance: CARBIDOPA\LEVODOPA
     Indication: Parkinson^s disease
     Dosage: 25-100 MG, QD (6AM)
     Route: 048
  5. BENZTROPINE [Concomitant]
     Active Substance: BENZTROPINE
     Indication: Parkinson^s disease
     Dosage: 0.5 MILLIGRAM, 2X/DAY (6AM, 3PM)
     Route: 048
  6. ASPIRIN [Concomitant]
     Active Substance: ASPIRIN
     Indication: Product used for unknown indication
     Dosage: QD (6AM)
     Route: 048
  7. MELATONIN [Concomitant]
     Active Substance: MELATONIN
     Indication: Product used for unknown indication
     Dosage: QD (7PM)
     Route: 048
  8. ENTACAPONE [Concomitant]
     Active Substance: ENTACAPONE
     Indication: Parkinson^s disease
     Dosage: UNK
     Route: 048

REACTIONS (2)
  - Tremor [Recovering/Resolving]
  - Dyskinesia [Recovering/Resolving]

NARRATIVE: CASE EVENT DATE: 20210101
